FAERS Safety Report 15340862 (Version 3)
Quarter: 2018Q4

REPORT INFORMATION
  Report Type: Spontaneous
  Country: US (occurrence: US)
  Receive Date: 20180831
  Receipt Date: 20181023
  Transmission Date: 20190204
  Serious: No
  Sender: FDA-Public Use
  Company Number: US-SA-2018SA241528

PATIENT
  Age: 77 Year
  Sex: Male

DRUGS (2)
  1. PRALUENT [Suspect]
     Active Substance: ALIROCUMAB
     Dosage: 75 MG, QOW
     Route: 058
     Dates: start: 2018
  2. PRALUENT [Suspect]
     Active Substance: ALIROCUMAB
     Indication: PRODUCT USED FOR UNKNOWN INDICATION
     Dosage: 75 MG, QOW
     Route: 058
     Dates: start: 20180627

REACTIONS (3)
  - Hallucination [Recovered/Resolved]
  - Injection site mass [Unknown]
  - Constipation [Unknown]

NARRATIVE: CASE EVENT DATE: 2018
